FAERS Safety Report 9479555 (Version 1)
Quarter: 2013Q3

REPORT INFORMATION
  Report Type: Spontaneous
  Country: US (occurrence: US)
  Receive Date: 20130827
  Receipt Date: 20130827
  Transmission Date: 20140515
  Serious: Yes (Hospitalization, Other)
  Sender: FDA-Public Use
  Company Number: US-B.I. PHARMACEUTICALS,INC./RIDGEFIELD-2013-BI-26298BP

PATIENT
  Age: 75 Year
  Sex: Female
  Weight: 59 kg

DRUGS (14)
  1. SPIRIVA [Suspect]
     Indication: CHRONIC OBSTRUCTIVE PULMONARY DISEASE
     Dosage: 18 MCG
     Route: 055
     Dates: start: 2004
  2. TRAZODONE [Concomitant]
     Indication: INSOMNIA
     Dosage: 50 MG
     Route: 048
     Dates: start: 2010
  3. VITAMIN D [Concomitant]
     Indication: VITAMIN D DEFICIENCY
     Dosage: 1000 MG
     Route: 048
     Dates: start: 2010
  4. ALEVE [Concomitant]
     Indication: BACK PAIN
     Route: 048
     Dates: start: 2011
  5. ALEVE [Concomitant]
     Indication: OSTEOPOROSIS
  6. ALBUTEROL NEBULIZER [Concomitant]
     Indication: CHRONIC OBSTRUCTIVE PULMONARY DISEASE
     Dosage: DOSE PER APLLICATION: 1 VIAL; DAILY DOSE: 4 VIALS
     Route: 055
     Dates: start: 2006
  7. VENTOLIN HFA [Concomitant]
     Indication: CHRONIC OBSTRUCTIVE PULMONARY DISEASE
     Dosage: 8 PUF
     Route: 055
     Dates: start: 2007
  8. LOSARTAN HCTZ [Concomitant]
     Indication: HYPERTENSION
     Dosage: DOSE PER APPLICATION: 50 MG / 12.5 MG; DAILY DOSE: 50 MG / 12.5 MG
     Route: 048
     Dates: start: 201212
  9. SERTRALINE [Concomitant]
     Indication: ANXIETY
     Dosage: 100 MG
     Route: 048
     Dates: start: 201302
  10. LORAZEPAM [Concomitant]
     Indication: ANXIETY
     Route: 048
     Dates: start: 2011
  11. CULTURELLE [Concomitant]
     Indication: CONSTIPATION
     Dosage: 1 ANZ
     Route: 048
     Dates: start: 201302
  12. NITROGLYCERIN [Concomitant]
     Indication: CHEST PAIN
     Route: 058
     Dates: start: 201305
  13. METOPROLOL [Concomitant]
     Indication: HYPERTENSION
     Dosage: 50 MG
     Route: 048
     Dates: start: 2010
  14. POTASSIUM CHLORIDE [Concomitant]
     Indication: BLOOD POTASSIUM DECREASED
     Dosage: 10 MEQ
     Route: 048
     Dates: start: 201304

REACTIONS (5)
  - Skin cancer [Not Recovered/Not Resolved]
  - Fall [Recovered/Resolved]
  - Upper limb fracture [Recovered/Resolved]
  - Fall [Recovered/Resolved]
  - Rib fracture [Recovered/Resolved]
